FAERS Safety Report 10270609 (Version 1)
Quarter: 2014Q3

REPORT INFORMATION
  Report Type: Report from Study
  Country: US (occurrence: US)
  Receive Date: 20140701
  Receipt Date: 20140701
  Transmission Date: 20150326
  Serious: Yes (Other)
  Sender: FDA-Public Use
  Company Number: US-GILEAD-2014-0107285

PATIENT
  Age: 52 Year
  Sex: Female

DRUGS (2)
  1. RIBAVIRIN. [Concomitant]
     Active Substance: RIBAVIRIN
  2. SOFOSBUVIR [Suspect]
     Active Substance: SOFOSBUVIR
     Indication: CHRONIC HEPATITIS C
     Dosage: 400 MG, UNK
     Route: 065
     Dates: start: 20140320

REACTIONS (12)
  - Syncope [Unknown]
  - Weight decreased [Unknown]
  - Hypersensitivity [Unknown]
  - Anaemia [Unknown]
  - Headache [Unknown]
  - Fatigue [Unknown]
  - Confusional state [Unknown]
  - Crying [Unknown]
  - Asthenia [Unknown]
  - Depression [Unknown]
  - Convulsion [Unknown]
  - Nausea [Unknown]

NARRATIVE: CASE EVENT DATE: 20140415
